FAERS Safety Report 19303065 (Version 1)
Quarter: 2021Q2

REPORT INFORMATION
  Report Type: Spontaneous
  Country: FR (occurrence: FR)
  Receive Date: 20210525
  Receipt Date: 20210525
  Transmission Date: 20210717
  Serious: Yes (Hospitalization)
  Sender: FDA-Public Use
  Company Number: FR-TEVA-2021-FR-1914472

PATIENT
  Age: 49 Year
  Sex: Female

DRUGS (2)
  1. AZITHROMY [Suspect]
     Active Substance: AZITHROMYCIN
     Indication: ANTIBIOTIC PROPHYLAXIS
     Dosage: 500 MG
     Route: 048
     Dates: start: 20210316, end: 20210317
  2. CEFTRIA [Suspect]
     Active Substance: CEFTRIAXONE
     Indication: ANTIBIOTIC PROPHYLAXIS
     Dosage: 1 GRAM
     Route: 042
     Dates: start: 20210316, end: 20210317

REACTIONS (2)
  - Hepatic cytolysis [Recovering/Resolving]
  - Transaminases increased [Recovering/Resolving]

NARRATIVE: CASE EVENT DATE: 20210317
